FAERS Safety Report 13472407 (Version 1)
Quarter: 2017Q2

REPORT INFORMATION
  Report Type: Spontaneous
  Country: US (occurrence: US)
  Receive Date: 20170424
  Receipt Date: 20170424
  Transmission Date: 20170830
  Serious: Yes (Other)
  Sender: FDA-Public Use
  Company Number: None

PATIENT
  Age: 48 Year
  Sex: Female

DRUGS (1)
  1. YUVAFEM [Suspect]
     Active Substance: ESTRADIOL HEMIHYDRATE
     Indication: ATROPHIC VULVOVAGINITIS
     Route: 067
     Dates: start: 20170320, end: 20170413

REACTIONS (3)
  - Rectal haemorrhage [None]
  - Vaginal haemorrhage [None]
  - Hypersensitivity [None]

NARRATIVE: CASE EVENT DATE: 20170403
